FAERS Safety Report 10263400 (Version 1)
Quarter: 2014Q2

REPORT INFORMATION
  Report Type: Spontaneous
  Country: US (occurrence: US)
  Receive Date: 20140626
  Receipt Date: 20140626
  Transmission Date: 20141212
  Serious: Yes (Hospitalization)
  Sender: FDA-Public Use
  Company Number: PHHY2014US075950

PATIENT
  Age: 69 Year
  Sex: Male

DRUGS (4)
  1. PROPAFENONE [Suspect]
     Indication: ATRIAL FIBRILLATION
     Dosage: 325 MG, BID
  2. MIRTAZAPINE [Interacting]
     Indication: INSOMNIA
     Dosage: 15 MG
  3. ASPIRIN [Concomitant]
     Dosage: 81 MG
  4. MULTI-VIT [Concomitant]

REACTIONS (5)
  - Dyskinesia [Unknown]
  - Convulsion [Unknown]
  - Bradycardia [Unknown]
  - Hypotension [Unknown]
  - Drug interaction [Unknown]
